FAERS Safety Report 17524633 (Version 4)
Quarter: 2020Q2

REPORT INFORMATION
  Report Type: Spontaneous
  Country: CO (occurrence: CO)
  Receive Date: 20200310
  Receipt Date: 20200409
  Transmission Date: 20200713
  Serious: Yes (Death, Hospitalization, Other)
  Sender: FDA-Public Use
  Company Number: CO-UNITED THERAPEUTICS-UNT-2019-017039

PATIENT

DRUGS (9)
  1. SILDENAFIL. [Concomitant]
     Active Substance: SILDENAFIL
     Indication: PULMONARY HYPERTENSION
     Dosage: 50 MG, BID (EVERY 12 HOURS)
     Route: 048
     Dates: start: 201908
  2. CARVEDILOL. [Concomitant]
     Active Substance: CARVEDILOL
     Indication: CARDIAC DISORDER
     Dosage: 6.25 MG, BID (EVERY 12 HOURS)
     Route: 048
     Dates: start: 201908
  3. WARFARIN [Concomitant]
     Active Substance: WARFARIN
     Indication: CARDIAC DISORDER
     Dosage: 5 MG, QD (EVERY 24 HOURS)
     Route: 048
     Dates: start: 201908
  4. REMODULIN [Suspect]
     Active Substance: TREPROSTINIL
     Indication: CONGENITAL PULMONARY HYPERTENSION
     Dosage: 0.028 ?G/KG, CONTINUING, INFUSION RATE OF 0.022 CC/HR
     Route: 058
  5. BOSENTAN. [Concomitant]
     Active Substance: BOSENTAN
     Indication: PULMONARY HYPERTENSION
     Dosage: 125 MG, QD (EVERY 24 HOURS)
     Route: 048
     Dates: start: 201908
  6. REMODULIN [Suspect]
     Active Substance: TREPROSTINIL
     Indication: CONGENITAL PULMONARY HYPERTENSION
     Dosage: 0.018 ?G/KG, CONTINUING
     Route: 058
     Dates: start: 20190805
  7. ENALAPRIL [Concomitant]
     Active Substance: ENALAPRIL
     Indication: CARDIAC DISORDER
     Dosage: 5 MG, BID (EVERY 12 HOURS)
     Route: 048
     Dates: start: 201908
  8. ATORVASTATIN [Concomitant]
     Active Substance: ATORVASTATIN
     Indication: CARDIAC DISORDER
     Dosage: 10 MG, QD (EVERY 24 HOURS)
     Route: 048
     Dates: start: 201908
  9. FERROUS SULFATE. [Concomitant]
     Active Substance: FERROUS SULFATE
     Indication: MENORRHAGIA
     Dosage: 300 MG, QD (EVERY 24 HOURS)
     Route: 048
     Dates: start: 201908

REACTIONS (11)
  - Dyspnoea [Recovered/Resolved]
  - Hepatomegaly [Unknown]
  - Vomiting [Recovered/Resolved]
  - Ascites [Recovering/Resolving]
  - Pallor [Not Recovered/Not Resolved]
  - Infusion site pain [Unknown]
  - Device dislocation [Unknown]
  - Fatigue [Recovered/Resolved]
  - Nausea [Recovered/Resolved]
  - Cardio-respiratory arrest [Fatal]
  - Abdominal pain [Recovered/Resolved]

NARRATIVE: CASE EVENT DATE: 20191003
